FAERS Safety Report 7528755-8 (Version None)
Quarter: 2011Q2

REPORT INFORMATION
  Report Type: 
  Country: None (occurrence: None)
  Receive Date: 20110607
  Receipt Date: 20100727
  Transmission Date: 20111010
  Serious: No
  Sender: FDA-Public Use
  Company Number: US-ASTRAZENECA-2010SE36106

PATIENT
  Sex: Male

DRUGS (1)
  1. PRILOSEC OTC [Suspect]
     Dosage: 1 TABLET, EVERY 4 DAY
     Route: 048

REACTIONS (5)
  - MUSCULOSKELETAL PAIN [None]
  - NECK PAIN [None]
  - BACK PAIN [None]
  - PAIN IN EXTREMITY [None]
  - MYALGIA [None]
